FAERS Safety Report 9260136 (Version 2)
Quarter: 2013Q3

REPORT INFORMATION
  Report Type: Spontaneous
  Country: US (occurrence: US)
  Receive Date: 20130429
  Receipt Date: 20130905
  Transmission Date: 20140515
  Serious: Yes (Other)
  Sender: FDA-Public Use
  Company Number: US-BAYER-2013-051781

PATIENT
  Age: 42 Year
  Sex: Female
  Weight: 106.58 kg

DRUGS (5)
  1. OCELLA [Suspect]
     Indication: MENORRHAGIA
  2. YASMIN [Suspect]
  3. NYSTATIN / TRIAMCINOLONE [Concomitant]
  4. MOTRIN [Concomitant]
     Dosage: 600 MG, QD
  5. TRI-SPRINTEC [Concomitant]
     Dosage: 1 TABLET DAILY

REACTIONS (1)
  - Deep vein thrombosis [None]
